FAERS Safety Report 5312510-3 (Version None)
Quarter: 2007Q2

REPORT INFORMATION
  Report Type: 
  Country: None (occurrence: None)
  Receive Date: 20070430
  Receipt Date: 20070425
  Transmission Date: 20071010
  Serious: Yes (Hospitalization)
  Sender: FDA-Public Use
  Company Number: FR-MERCK-0704FRA00053

PATIENT
  Age: 82 Year
  Sex: Female

DRUGS (6)
  1. COZAAR [Suspect]
     Indication: HYPERTENSION
     Route: 048
  2. ALLOPURINOL [Suspect]
     Route: 048
  3. DIGOXIN [Suspect]
     Route: 048
  4. FUROSEMIDE [Suspect]
     Route: 048
  5. AMIODARONE HYDROCHLORIDE [Suspect]
     Route: 048
  6. SPIRONOLACTONE [Suspect]
     Route: 048

REACTIONS (3)
  - FALL [None]
  - FRACTURE [None]
  - MALAISE [None]
